FAERS Safety Report 7221696-5 (Version None)
Quarter: 2011Q1

REPORT INFORMATION
  Report Type: 
  Country: None (occurrence: None)
  Receive Date: 20110112
  Receipt Date: 20110106
  Transmission Date: 20110831
  Serious: Yes (Death)
  Sender: FDA-Public Use
  Company Number: DE-ROCHE-752031

PATIENT
  Sex: Female
  Weight: 82 kg

DRUGS (11)
  1. FOLIC ACID [Concomitant]
     Dates: start: 20100429, end: 20110103
  2. BEVACIZUMAB [Suspect]
     Indication: NON-SMALL CELL LUNG CANCER
     Dosage: FORM: LIQUID, FREQUENCY: ONCE,  TEMPORARILY INTERRUPTED
     Route: 042
     Dates: start: 20100504, end: 20100527
  3. PEMETREXED [Suspect]
     Indication: NON-SMALL CELL LUNG CANCER
     Dosage: FORM: LIQUID, FREQUENCY: ONCE,  TEMPORARILY INTERRUPTED
     Route: 042
     Dates: start: 20100504, end: 20100527
  4. PEMETREXED [Suspect]
     Dosage: FORM: LIQUID, FREQUENCY: ONCE, RESTARTED, LAST DOSE PRIOR TO SAE: 21 DEC 2010
     Route: 042
     Dates: start: 20100608, end: 20110103
  5. BEVACIZUMAB [Suspect]
     Dosage: FORM: LIQUID, FREQUENCY: ONCE, RESTARTED.LAST DOSE PRIOR TO SAE: 21 DEC 2010,
     Route: 042
     Dates: start: 20100608, end: 20110103
  6. AUGMENTIN '125' [Concomitant]
     Dates: start: 20100503, end: 20100509
  7. PREDNISOLONE [Concomitant]
     Dosage: 5
     Dates: start: 20100401, end: 20110103
  8. CISPLATIN [Suspect]
     Indication: NON-SMALL CELL LUNG CANCER
     Dosage: FORM: LIQUID, FREQUENCY: ONCE,  TEMPORARILY INTERRUPTED
     Route: 042
     Dates: start: 20100504, end: 20100527
  9. PREDNISOLONE EYE DROPS [Concomitant]
     Dates: start: 20100722, end: 20110103
  10. CISPLATIN [Suspect]
     Dosage: FORM: LIQUID, FREQUENCY: ONCE, RESTARTED. LAST DOSE PRIOR TO SAE: 22 JUL 2010,
     Route: 042
     Dates: start: 20100608
  11. RAMIPRIL [Concomitant]
     Dates: start: 20100801, end: 20110103

REACTIONS (5)
  - FALL [None]
  - PNEUMOPERICARDIUM [None]
  - PNEUMOMEDIASTINUM [None]
  - DEATH [None]
  - PNEUMOTHORAX TRAUMATIC [None]
